FAERS Safety Report 19215927 (Version 1)
Quarter: 2021Q2

REPORT INFORMATION
  Report Type: Report from Study
  Country: None (occurrence: FR)
  Receive Date: 20210505
  Receipt Date: 20210505
  Transmission Date: 20210717
  Serious: Yes (Hospitalization, Other)
  Sender: FDA-Public Use
  Company Number: FR-ABBVIE-21K-056-3887723-00

PATIENT
  Age: 51 Year
  Sex: Male

DRUGS (8)
  1. DIPROSONE [Concomitant]
     Active Substance: BETAMETHASONE DIPROPIONATE
     Indication: SKIN LESION
     Route: 003
     Dates: start: 20161006
  2. TARDYFERON [Concomitant]
     Active Substance: FERROUS SULFATE
     Indication: COLITIS ULCERATIVE
     Route: 048
     Dates: start: 20201123
  3. AZATHIOPRINE. [Suspect]
     Active Substance: AZATHIOPRINE
     Indication: COLITIS ULCERATIVE
     Route: 048
     Dates: start: 199802, end: 201904
  4. HUMIRA [Suspect]
     Active Substance: ADALIMUMAB
     Route: 058
     Dates: start: 20160115, end: 201904
  5. VEDOLIZUMAB [Concomitant]
     Active Substance: VEDOLIZUMAB
     Indication: COLITIS ULCERATIVE
     Route: 040
     Dates: start: 20201214
  6. ZOPICLONE [Concomitant]
     Active Substance: ZOPICLONE
     Indication: COLITIS ULCERATIVE
     Route: 048
     Dates: start: 202012
  7. HUMIRA [Suspect]
     Active Substance: ADALIMUMAB
     Indication: COLITIS ULCERATIVE
     Route: 058
     Dates: start: 20151001, end: 20151231
  8. NERISONE [Concomitant]
     Active Substance: DIFLUCORTOLONE VALERATE
     Indication: SKIN LESION
     Route: 003
     Dates: start: 20170329

REACTIONS (2)
  - Goitre [Recovered/Resolved]
  - Thyroidectomy [Recovered/Resolved]

NARRATIVE: CASE EVENT DATE: 20210423
